FAERS Safety Report 17978535 (Version 1)
Quarter: 2020Q3

REPORT INFORMATION
  Report Type: Report from Study
  Country: GB (occurrence: GB)
  Receive Date: 20200703
  Receipt Date: 20200703
  Transmission Date: 20201103
  Serious: Yes (Other)
  Sender: FDA-Public Use
  Company Number: GB-ALIMERA SCIENCES INC.-GB-A16013-20-000574

PATIENT

DRUGS (2)
  1. METFORMIN [Concomitant]
     Active Substance: METFORMIN HYDROCHLORIDE
     Indication: TYPE 2 DIABETES MELLITUS
     Dosage: UNK
  2. ILUVIEN [Suspect]
     Active Substance: FLUOCINOLONE ACETONIDE
     Indication: DIABETIC RETINAL OEDEMA
     Dosage: 0.25 ??G, QD, LEFT EYE
     Route: 031
     Dates: start: 20150304

REACTIONS (6)
  - Optic disc disorder [Not Recovered/Not Resolved]
  - Glaucoma [Unknown]
  - Photocoagulation [Recovered/Resolved]
  - Glaucoma drainage device placement [Recovered/Resolved]
  - Trabeculoplasty [Recovered/Resolved]
  - Intraocular pressure increased [Not Recovered/Not Resolved]

NARRATIVE: CASE EVENT DATE: 20171021
